FAERS Safety Report 9245276 (Version 1)
Quarter: 2013Q2

REPORT INFORMATION
  Report Type: Spontaneous
  Country: CA (occurrence: CA)
  Receive Date: 20130422
  Receipt Date: 20130422
  Transmission Date: 20140414
  Serious: Yes (Other)
  Sender: FDA-Public Use
  Company Number: CA-009507513-1304CAN010837

PATIENT
  Age: 46 Year
  Sex: Male

DRUGS (3)
  1. JANUVIA [Suspect]
     Indication: DIABETES MELLITUS
     Dosage: 100 MG, UNK
  2. METFORMIN [Concomitant]
  3. LIPITOR [Concomitant]

REACTIONS (1)
  - Pancreatic carcinoma [Unknown]
